FAERS Safety Report 17390956 (Version 1)
Quarter: 2020Q1

REPORT INFORMATION
  Report Type: Spontaneous
  Country: FR (occurrence: FR)
  Receive Date: 20200207
  Receipt Date: 20200207
  Transmission Date: 20200409
  Serious: Yes (Hospitalization, Other)
  Sender: FDA-Public Use
  Company Number: FR-PFIZER INC-2020056117

PATIENT
  Age: 86 Year
  Sex: Male
  Weight: 90 kg

DRUGS (3)
  1. CORDARONE [Suspect]
     Active Substance: AMIODARONE HYDROCHLORIDE
     Indication: CORONARY ARTERY BYPASS
     Dosage: 100 MG, QD
     Route: 048
  2. XARELTO [Interacting]
     Active Substance: RIVAROXABAN
     Indication: PHLEBITIS
     Dosage: 15 MG, QD
     Route: 048
  3. KARDEGIC [Interacting]
     Active Substance: ASPIRIN DL-LYSINE
     Indication: CORONARY ARTERY BYPASS
     Dosage: 75 MG, QD (POWDER FOR ORAL SOLUTION IN SACHET-DOSE)
     Route: 048

REACTIONS (2)
  - Rectal haemorrhage [Recovering/Resolving]
  - Drug interaction [Unknown]

NARRATIVE: CASE EVENT DATE: 20200108
